FAERS Safety Report 4681509-2 (Version None)
Quarter: 2005Q2

REPORT INFORMATION
  Report Type: 
  Country: None (occurrence: None)
  Receive Date: 20050602
  Receipt Date: 20050516
  Transmission Date: 20051028
  Serious: Yes (Other)
  Sender: FDA-Public Use
  Company Number: USA050496158

PATIENT
  Age: 83 Year
  Sex: Male

DRUGS (8)
  1. HUMULIN N [Suspect]
     Indication: DIABETES MELLITUS
     Dates: start: 19900501
  2. HUMULIN R [Suspect]
     Indication: DIABETES MELLITUS
     Dates: start: 19900501
  3. HUMALOG [Suspect]
     Indication: DIABETES MELLITUS
     Dosage: 7 U; OTHER
     Route: 050
     Dates: start: 20050201
  4. LANTUS [Concomitant]
  5. LOPID [Concomitant]
  6. LISINOPRIL [Concomitant]
  7. CASODEX [Concomitant]
  8. LUPRON [Concomitant]

REACTIONS (7)
  - ABASIA [None]
  - BLOOD GLUCOSE INCREASED [None]
  - DIABETES MELLITUS INADEQUATE CONTROL [None]
  - DIABETIC NEUROPATHY [None]
  - HIP FRACTURE [None]
  - PROSTATE CANCER [None]
  - WRONG DRUG ADMINISTERED [None]
